FAERS Safety Report 8576457-1 (Version None)
Quarter: 2012Q3

REPORT INFORMATION
  Report Type: 
  Country: None (occurrence: None)
  Receive Date: 20120807
  Receipt Date: 20120723
  Transmission Date: 20120928
  Serious: Yes (Other)
  Sender: FDA-Public Use
  Company Number: US-ROCHE-557580

PATIENT

DRUGS (2)
  1. MABTHERA [Suspect]
     Indication: MANTLE CELL LYMPHOMA
     Dosage: FOR 4 WEEKS, FIRST DOSE ON DAY 1 OF CYCLE 1
     Route: 042
  2. LENALIDOMIDE [Suspect]
     Indication: MANTLE CELL LYMPHOMA
     Dosage: DAY 1-21 OF 28 DAY CYCLE
     Route: 048

REACTIONS (30)
  - RASH [None]
  - FATIGUE [None]
  - FACE OEDEMA [None]
  - ASPARTATE AMINOTRANSFERASE INCREASED [None]
  - ATAXIA [None]
  - DYSPNOEA [None]
  - PERIPHERAL SENSORY NEUROPATHY [None]
  - ABDOMINAL PAIN [None]
  - COUGH [None]
  - HYPOPHOSPHATAEMIA [None]
  - HYPERGLYCAEMIA [None]
  - ALANINE AMINOTRANSFERASE INCREASED [None]
  - NEUTROPENIA [None]
  - PYREXIA [None]
  - TREMOR [None]
  - EMBOLISM [None]
  - HYPERCALCAEMIA [None]
  - THROMBOCYTOPENIA [None]
  - INFECTION [None]
  - HYPERURICAEMIA [None]
  - FEBRILE NEUTROPENIA [None]
  - MYALGIA [None]
  - DEEP VEIN THROMBOSIS [None]
  - LEUKOPENIA [None]
  - PLEURAL EFFUSION [None]
  - LYMPHOPENIA [None]
  - RESPIRATORY FAILURE [None]
  - ANAEMIA [None]
  - PAIN IN EXTREMITY [None]
  - HYPERKALAEMIA [None]
